FAERS Safety Report 10751218 (Version 3)
Quarter: 2015Q3

REPORT INFORMATION
  Report Type: Spontaneous
  Country: US (occurrence: US)
  Receive Date: 20150130
  Receipt Date: 20150702
  Transmission Date: 20151125
  Serious: No
  Sender: FDA-Public Use
  Company Number: US-PFIZER INC-2015025304

PATIENT
  Sex: Female
  Weight: 132 kg

DRUGS (3)
  1. VERAPAMIL HCL [Suspect]
     Active Substance: VERAPAMIL HYDROCHLORIDE
     Dosage: UNK
  2. NIACIN. [Suspect]
     Active Substance: NIACIN
     Dosage: UNK
  3. QUINIDINE [Suspect]
     Active Substance: QUINIDINE
     Dosage: UNK

REACTIONS (1)
  - Drug hypersensitivity [Unknown]
